FAERS Safety Report 18472805 (Version 1)
Quarter: 2020Q4

REPORT INFORMATION
  Report Type: Report from Study
  Country: US (occurrence: US)
  Receive Date: 20201106
  Receipt Date: 20201106
  Transmission Date: 20210114
  Serious: Yes (Other)
  Sender: FDA-Public Use
  Company Number: US-MYLANLABS-2020M1092477

PATIENT
  Sex: Female

DRUGS (1)
  1. SULINDAC. [Suspect]
     Active Substance: SULINDAC
     Indication: ADENOMATOUS POLYPOSIS COLI
     Dosage: 150 MILLIGRAM, QD (FOR UP TO 48 MONTHS)
     Route: 048

REACTIONS (3)
  - Maternal exposure during pregnancy [Unknown]
  - Abortion spontaneous [Unknown]
  - Off label use [Unknown]
